FAERS Safety Report 11203672 (Version 2)
Quarter: 2015Q2

REPORT INFORMATION
  Report Type: Spontaneous
  Country: GB (occurrence: GB)
  Receive Date: 20150619
  Receipt Date: 20150620
  Transmission Date: 20150821
  Serious: Yes (Hospitalization, Other)
  Sender: FDA-Public Use
  Company Number: PHFR2015GB004481

PATIENT
  Age: 46 Year
  Sex: Male

DRUGS (2)
  1. LORAZEPAM. [Concomitant]
     Active Substance: LORAZEPAM
     Indication: PRODUCT USED FOR UNKNOWN INDICATION
     Route: 065
  2. CLOZAPINE. [Suspect]
     Active Substance: CLOZAPINE
     Indication: SCHIZOPHRENIA, PARANOID TYPE
     Dosage: 350 MG
     Route: 048

REACTIONS (5)
  - VIIth nerve paralysis [Recovering/Resolving]
  - Communication disorder [Recovering/Resolving]
  - Pulse abnormal [Recovering/Resolving]
  - Salivary hypersecretion [Recovering/Resolving]
  - Ischaemic stroke [Recovering/Resolving]
